FAERS Safety Report 7808518-6 (Version None)
Quarter: 2011Q4

REPORT INFORMATION
  Report Type: 
  Country: None (occurrence: None)
  Receive Date: 20111012
  Receipt Date: 20111003
  Transmission Date: 20120403
  Serious: Yes (Death, Life-Threatening, Hospitalization)
  Sender: FDA-Public Use
  Company Number: FR-JNJFOC-20111003958

PATIENT
  Age: 50 Year
  Sex: Female

DRUGS (2)
  1. ACETAMINOPHEN AND TRAMADOL HCL [Suspect]
     Indication: RENAL COLIC
     Route: 048
     Dates: start: 20110501
  2. ALFUZOSIN HCL [Suspect]
     Indication: RENAL COLIC
     Route: 065
     Dates: start: 20110501

REACTIONS (5)
  - HYPOKALAEMIA [None]
  - SHOCK [None]
  - COMA [None]
  - VOMITING [None]
  - CARDIO-RESPIRATORY ARREST [None]
